FAERS Safety Report 12598004 (Version 1)
Quarter: 2016Q3

REPORT INFORMATION
  Report Type: Spontaneous
  Country: IT (occurrence: IT)
  Receive Date: 20160727
  Receipt Date: 20160727
  Transmission Date: 20161109
  Serious: Yes (Other)
  Sender: FDA-Public Use
  Company Number: PHHY2016IT099966

PATIENT
  Age: 79 Year
  Sex: Female

DRUGS (1)
  1. SOM230 [Suspect]
     Active Substance: PASIREOTIDE
     Indication: PITUITARY TUMOUR BENIGN
     Dosage: UNK
     Route: 065
     Dates: start: 2011

REACTIONS (3)
  - Hypercorticoidism [Not Recovered/Not Resolved]
  - Pituitary enlargement [Unknown]
  - Neoplasm progression [Unknown]
